FAERS Safety Report 8126053-5 (Version None)
Quarter: 2012Q1

REPORT INFORMATION
  Report Type: 
  Country: None (occurrence: None)
  Receive Date: 20120209
  Receipt Date: 20120207
  Transmission Date: 20120608
  Serious: Yes (Other)
  Sender: FDA-Public Use
  Company Number: US-AMGEN-USASP2011047578

PATIENT
  Age: 50 Year
  Sex: Female

DRUGS (5)
  1. ENBREL [Suspect]
     Indication: PSORIASIS
     Dosage: 50 MG, 2 TIMES/WK
     Route: 058
     Dates: start: 20080922, end: 20101101
  2. ESTROGENIC SUBSTANCE [Concomitant]
     Dosage: UNK
  3. CLOBEX                             /00012002/ [Concomitant]
     Dosage: UNK
  4. TMC 125 [Concomitant]
     Dosage: UNK
  5. VECTICAL [Concomitant]
     Dosage: UNK

REACTIONS (8)
  - LABORATORY TEST ABNORMAL [None]
  - VISUAL IMPAIRMENT [None]
  - PUSTULAR PSORIASIS [None]
  - THERAPEUTIC RESPONSE DECREASED [None]
  - PARAESTHESIA [None]
  - FEELING HOT [None]
  - PAIN IN EXTREMITY [None]
  - PRURITUS [None]
